FAERS Safety Report 8879211 (Version 8)
Quarter: 2013Q3

REPORT INFORMATION
  Report Type: Spontaneous
  Country: DE (occurrence: None)
  Receive Date: 20121026
  Receipt Date: 20130823
  Transmission Date: 20140515
  Serious: Yes (Other)
  Sender: FDA-Public Use
  Company Number: US-2012-11507

PATIENT
  Age: 45 Year
  Sex: Male

DRUGS (8)
  1. OPC-41061 [Suspect]
     Indication: CONGENITAL CYSTIC KIDNEY DISEASE
     Route: 048
     Dates: start: 20110802, end: 20121005
  2. APROVEL [Concomitant]
  3. FOLIC ACID (FOLIC ACID) [Concomitant]
  4. VITAMIN D (COLECALCIFEROL) [Concomitant]
  5. VITAMIN B 6 (PYRIDOXINE HYDROCHLORIDE) [Concomitant]
  6. ASPIRIN PROTECT (ACETYLSALICYLIC ACID) [Concomitant]
  7. VITAMIN E (TOCOPHERYL ACETATE) [Concomitant]
  8. IODIDES TINCT (IODINE, SODIUM IODIDE) [Concomitant]

REACTIONS (9)
  - Alanine aminotransferase increased [None]
  - Drug-induced liver injury [None]
  - Aspartate aminotransferase increased [None]
  - Gamma-glutamyltransferase increased [None]
  - Blood creatinine increased [None]
  - Haemoglobin decreased [None]
  - Blood uric acid decreased [None]
  - Blood uric acid increased [None]
  - Lipase increased [None]
